FAERS Safety Report 5982269-5 (Version None)
Quarter: 2008Q4

REPORT INFORMATION
  Report Type: 
  Country: None (occurrence: None)
  Receive Date: 20081208
  Receipt Date: 20081204
  Transmission Date: 20090506
  Serious: Yes (Life-Threatening)
  Sender: FDA-Public Use
  Company Number: B0549294A

PATIENT
  Age: 32 Year
  Sex: Female

DRUGS (3)
  1. AVAMYS [Suspect]
     Indication: DRUG USE FOR UNKNOWN INDICATION
     Dosage: 55MCG PER DAY
     Route: 045
  2. SINGULAIR [Concomitant]
     Route: 065
  3. ALVESCO [Concomitant]
     Route: 065

REACTIONS (3)
  - ANAPHYLACTIC REACTION [None]
  - TACHYCARDIA [None]
  - TREMOR [None]
